FAERS Safety Report 15937527 (Version 2)
Quarter: 2019Q2

REPORT INFORMATION
  Report Type: Spontaneous
  Country: US (occurrence: US)
  Receive Date: 20190208
  Receipt Date: 20190507
  Transmission Date: 20190711
  Serious: Yes (Other)
  Sender: FDA-Public Use
  Company Number: US-HQ SPECIALTY-US-2019INT000026

PATIENT

DRUGS (4)
  1. ARIMIDEX [Concomitant]
     Active Substance: ANASTROZOLE
     Indication: BREAST CANCER METASTATIC
     Dosage: UNK
     Dates: start: 20150505
  2. IBRANCE [Concomitant]
     Active Substance: PALBOCICLIB
     Indication: BREAST CANCER METASTATIC
     Dosage: UNK
     Dates: start: 20150505
  3. RADIOTHERAPY [Suspect]
     Active Substance: RADIATION THERAPY
     Indication: PRODUCT USED FOR UNKNOWN INDICATION
     Dosage: UNK
     Route: 065
  4. TAXOL [Suspect]
     Active Substance: PACLITAXEL
     Indication: BREAST CANCER METASTATIC
     Dosage: UNK (WEEKLY)
     Route: 065
     Dates: start: 201801, end: 201808

REACTIONS (7)
  - Cholecystitis [Unknown]
  - Osteonecrosis of jaw [Unknown]
  - Gastric ulcer [Recovering/Resolving]
  - Pleural effusion [Not Recovered/Not Resolved]
  - Malignant neoplasm progression [Unknown]
  - Pulmonary embolism [Unknown]
  - Pharyngitis bacterial [Unknown]

NARRATIVE: CASE EVENT DATE: 201810
